FAERS Safety Report 4843294-0 (Version None)
Quarter: 2005Q4

REPORT INFORMATION
  Report Type: 
  Country: None (occurrence: None)
  Receive Date: 20051201
  Receipt Date: 20051128
  Transmission Date: 20060501
  Serious: Yes (Other)
  Sender: FDA-Public Use
  Company Number: AU-MERCK-0511AUS00430

PATIENT
  Age: 65 Year
  Sex: Female

DRUGS (1)
  1. FOSAMAX [Suspect]
     Indication: OSTEOPOROSIS
     Route: 048
     Dates: start: 20010101, end: 20050101

REACTIONS (9)
  - BONE PAIN [None]
  - DIVERTICULITIS [None]
  - DYSGEUSIA [None]
  - FACIAL PAIN [None]
  - GASTROINTESTINAL HAEMORRHAGE [None]
  - PHARYNGOLARYNGEAL PAIN [None]
  - PRODUCTIVE COUGH [None]
  - RECTAL FISSURE [None]
  - TOOTHACHE [None]
